FAERS Safety Report 21609720 (Version 1)
Quarter: 2022Q4

REPORT INFORMATION
  Report Type: Spontaneous
  Country: US (occurrence: US)
  Receive Date: 20221117
  Receipt Date: 20221117
  Transmission Date: 20230113
  Serious: No
  Sender: FDA-Public Use
  Company Number: US-GALDERMA-US2022015145

PATIENT

DRUGS (1)
  1. TWYNEO [Suspect]
     Active Substance: BENZOYL PEROXIDE\TRETINOIN
     Indication: Acne
     Dosage: 1 DOSAGE FORM, QD, ONCE
     Route: 061
     Dates: start: 20220920, end: 20221020

REACTIONS (8)
  - Acne [Recovered/Resolved]
  - Urticaria [Recovered/Resolved]
  - Pain of skin [Recovered/Resolved]
  - Skin burning sensation [Recovered/Resolved]
  - Skin swelling [Recovered/Resolved]
  - Hypersensitivity [Recovered/Resolved]
  - Acne pustular [Recovered/Resolved]
  - Skin infection [Recovered/Resolved]

NARRATIVE: CASE EVENT DATE: 20220927
